FAERS Safety Report 5611544-9 (Version None)
Quarter: 2008Q1

REPORT INFORMATION
  Report Type: 
  Country: None (occurrence: None)
  Receive Date: 20080201
  Receipt Date: 20080129
  Transmission Date: 20080703
  Serious: Yes (Hospitalization)
  Sender: FDA-Public Use
  Company Number: JP-BOEHRINGER INGELHEIM GMBH, GERMANY-2007-BP-26077NB

PATIENT
  Sex: Male
  Weight: 54 kg

DRUGS (8)
  1. MOBIC [Suspect]
     Indication: SPINAL OSTEOARTHRITIS
     Route: 048
     Dates: start: 20060801, end: 20061226
  2. LOXONIN [Suspect]
     Indication: SPINAL OSTEOARTHRITIS
     Route: 048
     Dates: start: 20060821, end: 20061226
  3. GEMZAR [Concomitant]
     Indication: BILE DUCT CANCER STAGE III
     Route: 042
     Dates: start: 20060407
  4. MARZULENE [Concomitant]
     Indication: BILE DUCT CANCER STAGE III
     Route: 048
     Dates: start: 20060304
  5. BIOFERMIN [Concomitant]
     Indication: BILE DUCT CANCER STAGE III
     Route: 048
     Dates: start: 20061103, end: 20061105
  6. BERIZYM (PANCREATIC ENZYME COMBINED DRUG) [Concomitant]
     Indication: BILE DUCT CANCER STAGE III
     Route: 048
     Dates: start: 20060703
  7. OPALMON [Concomitant]
     Indication: SPINAL OSTEOARTHRITIS
     Route: 048
     Dates: start: 20060906, end: 20070121
  8. VOLTAREN [Concomitant]
     Indication: SPINAL OSTEOARTHRITIS
     Route: 048
     Dates: start: 19960925, end: 20061112

REACTIONS (2)
  - ILEUS [None]
  - LARGE INTESTINAL ULCER [None]
